FAERS Safety Report 4604911-3 (Version None)
Quarter: 2005Q1

REPORT INFORMATION
  Report Type: 
  Country: None (occurrence: None)
  Receive Date: 20050311
  Receipt Date: 20050303
  Transmission Date: 20050727
  Serious: Yes (Other)
  Sender: FDA-Public Use
  Company Number: PHBS2005JP03294

PATIENT
  Age: 21 Year
  Sex: Male

DRUGS (3)
  1. ALEVIATIN [Concomitant]
     Indication: EPILEPSY
     Route: 048
  2. PHENOBARBITAL [Concomitant]
     Indication: EPILEPSY
     Route: 048
  3. ZADITEN [Suspect]
     Route: 048

REACTIONS (1)
  - EPILEPSY [None]
